FAERS Safety Report 6473553-X (Version None)
Quarter: 2009Q4

REPORT INFORMATION
  Report Type: 
  Country: None (occurrence: None)
  Receive Date: 20091204
  Receipt Date: 20090302
  Transmission Date: 20100525
  Serious: Yes (Disabling)
  Sender: FDA-Public Use
  Company Number: US-ELI_LILLY_AND_COMPANY-US200812005498

PATIENT
  Sex: Male
  Weight: 125.62 kg

DRUGS (6)
  1. HUMALOG [Suspect]
     Indication: DIABETES MELLITUS
     Dosage: 50 U, 3/D
     Dates: start: 20050301
  2. HUMALOG [Suspect]
     Dosage: 60 U, UNK
  3. MULTI-VITAMIN [Concomitant]
     Dosage: UNK, DAILY (1/D)
     Route: 048
  4. CALCIUM [Concomitant]
     Dosage: UNK, DAILY (1/D)
     Route: 048
  5. PRILOSEC [Concomitant]
     Dosage: 10 MG, DAILY (1/D)
     Route: 048
  6. ADVAIR DISKUS 100/50 [Concomitant]
     Dosage: UNK, 2/D
     Route: 055
     Dates: start: 20080731

REACTIONS (4)
  - FALL [None]
  - HIP FRACTURE [None]
  - MOTOR DYSFUNCTION [None]
  - PAIN IN EXTREMITY [None]
